FAERS Safety Report 5512593-1 (Version None)
Quarter: 2007Q4

REPORT INFORMATION
  Report Type: 
  Country: None (occurrence: None)
  Receive Date: 20071112
  Receipt Date: 20071108
  Transmission Date: 20080405
  Serious: Yes (Other)
  Sender: FDA-Public Use
  Company Number: US-RB-007658-07

PATIENT
  Age: 64 Year
  Sex: Male

DRUGS (5)
  1. SUBOXONE [Suspect]
     Route: 060
     Dates: start: 20070701
  2. SUBOXONE [Suspect]
     Route: 060
     Dates: start: 20070701, end: 20070701
  3. SUBOXONE [Suspect]
     Route: 060
     Dates: start: 20070701, end: 20070701
  4. XANAX [Concomitant]
     Indication: ANXIETY
     Dosage: DOSE UNKNOWN
     Route: 048
  5. LIPITOR [Concomitant]
     Dosage: DOSE UNKNOWN
     Route: 048

REACTIONS (4)
  - DIZZINESS [None]
  - HALLUCINATION [None]
  - HYPOTENSION [None]
  - INSOMNIA [None]
